FAERS Safety Report 5857599-8 (Version None)
Quarter: 2008Q3

REPORT INFORMATION
  Report Type: 
  Country: None (occurrence: None)
  Receive Date: 20080825
  Receipt Date: 20080825
  Transmission Date: 20090109
  Serious: Yes (Hospitalization, Other)
  Sender: FDA-Public Use
  Company Number: None

PATIENT
  Age: 53 Year
  Sex: Female
  Weight: 68.0396 kg

DRUGS (2)
  1. NARCAN [Suspect]
     Indication: RESPIRATORY RATE DECREASED
     Dosage: SEVERAL HOURS
     Dates: start: 20080705, end: 20080705
  2. METHADONE HCL [Suspect]
     Indication: PAIN
     Dates: start: 20080702, end: 20080705

REACTIONS (6)
  - AGGRESSION [None]
  - DISORIENTATION [None]
  - HALLUCINATION [None]
  - MEMORY IMPAIRMENT [None]
  - RESPIRATORY ARREST [None]
  - THINKING ABNORMAL [None]
